FAERS Safety Report 16999012 (Version 2)
Quarter: 2019Q4

REPORT INFORMATION
  Report Type: Spontaneous
  Country: JP (occurrence: JP)
  Receive Date: 20191106
  Receipt Date: 20191229
  Transmission Date: 20200122
  Serious: Yes (Hospitalization, Other)
  Sender: FDA-Public Use
  Company Number: PHJP2019JP012944

PATIENT
  Age: 59 Year
  Sex: Female
  Weight: 54 kg

DRUGS (4)
  1. EQUA TAB [Suspect]
     Active Substance: VILDAGLIPTIN
     Indication: TYPE 2 DIABETES MELLITUS
     Dosage: 50 MG, BID
     Route: 048
     Dates: start: 20190910, end: 20191002
  2. METGLUCO [Concomitant]
     Active Substance: METFORMIN HYDROCHLORIDE
     Indication: TYPE 2 DIABETES MELLITUS
     Dosage: 500 MG, BID
     Route: 048
     Dates: start: 20190910
  3. SUREPOST [Concomitant]
     Active Substance: REPAGLINIDE
     Indication: TYPE 2 DIABETES MELLITUS
     Dosage: 0.5 MG, TID
     Route: 048
     Dates: start: 20170718
  4. EQUMET [Suspect]
     Active Substance: METFORMIN HYDROCHLORIDE\VILDAGLIPTIN
     Indication: TYPE 2 DIABETES MELLITUS
     Dosage: 1 DF: METFORMIN 500MG VILDAGLIPTIN 50MG, BID
     Route: 048
     Dates: start: 20180417, end: 20190909

REACTIONS (10)
  - Dysphagia [Unknown]
  - Pemphigoid [Unknown]
  - Ocular hyperaemia [Unknown]
  - Oral mucosa erosion [Unknown]
  - Blister [Unknown]
  - Pemphigus [Unknown]
  - Pain [Unknown]
  - Pustule [Unknown]
  - Mouth ulceration [Unknown]
  - Erythema [Unknown]

NARRATIVE: CASE EVENT DATE: 20190719
